FAERS Safety Report 10146730 (Version 1)
Quarter: 2014Q2

REPORT INFORMATION
  Report Type: Spontaneous
  Country: AU (occurrence: None)
  Receive Date: 20140429
  Receipt Date: 20140429
  Transmission Date: 20141212
  Serious: Yes (Death, Hospitalization)
  Sender: FDA-Public Use
  Company Number: CO-OR-AU-2014-034

PATIENT
  Age: 56 Year
  Sex: Female

DRUGS (3)
  1. PREDNISOLONE [Suspect]
     Indication: IMMUNOSUPPRESSION
     Dosage: TAPERING DOSE DOWN TO 5 MG
  2. TACROLIMUS [Suspect]
     Indication: IMMUNOSUPPRESSION
  3. MYCOPHELONIC ACID [Suspect]
     Indication: IMMUNOSUPPRESSION

REACTIONS (9)
  - Kidney transplant rejection [None]
  - Sepsis [None]
  - Aplastic anaemia [None]
  - Bronchopulmonary aspergillosis [None]
  - Drug resistance [None]
  - Anaemia [None]
  - Pancytopenia [None]
  - Cytomegalovirus viraemia [None]
  - No therapeutic response [None]
